FAERS Safety Report 6255716-1 (Version None)
Quarter: 2009Q3

REPORT INFORMATION
  Report Type: 
  Country: None (occurrence: None)
  Receive Date: 20090701
  Receipt Date: 20090619
  Transmission Date: 20100115
  Serious: Yes (Death)
  Sender: FDA-Public Use
  Company Number: 2009-02518

PATIENT
  Age: 48 Year
  Sex: Male
  Weight: 91.5 kg

DRUGS (7)
  1. VELCADE [Suspect]
     Indication: MULTIPLE MYELOMA
     Dosage: INTRAVENOUS
     Route: 042
     Dates: start: 20090515
  2. ZOMETA [Concomitant]
  3. PANTOPRAZOLE SODIUM [Concomitant]
  4. DECADRON [Concomitant]
  5. SUPEUDOL (OXYCODONE HYDROCHLORIDE) [Concomitant]
  6. TYLENOL [Concomitant]
  7. PROCHLORPERAZINE MALEATE [Concomitant]

REACTIONS (1)
  - MYOCARDIAL INFARCTION [None]
